FAERS Safety Report 12963003 (Version 1)
Quarter: 2016Q4

REPORT INFORMATION
  Report Type: Report from Study
  Country: ES (occurrence: ES)
  Receive Date: 20161122
  Receipt Date: 20161122
  Transmission Date: 20170207
  Serious: Yes (Death)
  Sender: FDA-Public Use
  Company Number: ES-ROCHE-1844396

PATIENT
  Age: 51 Year
  Sex: Female

DRUGS (8)
  1. LORAZEPAM. [Concomitant]
     Active Substance: LORAZEPAM
     Indication: VOMITING
     Route: 048
     Dates: start: 20151221, end: 20160127
  2. DEXKETOPROFENO [Concomitant]
     Indication: VOMITING
     Route: 048
     Dates: start: 20151221, end: 20151227
  3. BEVACIZUMAB [Suspect]
     Active Substance: BEVACIZUMAB
     Indication: BREAST CANCER
     Route: 042
     Dates: start: 20151209, end: 20160128
  4. DEXAMETASONA [Concomitant]
     Active Substance: DEXAMETHASONE
     Indication: VOMITING
     Route: 048
     Dates: start: 20151221, end: 20151228
  5. PACLITAXEL. [Suspect]
     Active Substance: PACLITAXEL
     Indication: BREAST CANCER
     Route: 042
     Dates: start: 20151209, end: 20160128
  6. SIMETHICONE (DIMETHICONE) [Concomitant]
     Active Substance: DIMETHICONE
     Route: 048
     Dates: start: 20151221, end: 20160127
  7. OMEPRAZOL [Concomitant]
     Active Substance: OMEPRAZOLE
     Indication: ABDOMINAL PAIN UPPER
     Route: 048
     Dates: start: 20151221, end: 20160127
  8. DOMPERIDONA [Concomitant]
     Indication: VOMITING
     Route: 048
     Dates: start: 20151221, end: 20151226

REACTIONS (1)
  - Abdominal pain upper [Fatal]

NARRATIVE: CASE EVENT DATE: 20160127
